FAERS Safety Report 5075282-6 (Version None)
Quarter: 2006Q3

REPORT INFORMATION
  Report Type: 
  Country: None (occurrence: None)
  Receive Date: 20060804
  Receipt Date: 20060724
  Transmission Date: 20061208
  Serious: Yes (Other)
  Sender: FDA-Public Use
  Company Number: US-2006-017940

PATIENT
  Sex: 0

DRUGS (1)
  1. MAGNEVIST [Suspect]
     Dosage: 20 ML, 1 DOSE
     Dates: start: 20040226, end: 20040226

REACTIONS (1)
  - NEPHROGENIC FIBROSING DERMOPATHY [None]
